FAERS Safety Report 19456140 (Version 2)
Quarter: 2021Q3

REPORT INFORMATION
  Report Type: Other
  Country: AT (occurrence: AT)
  Receive Date: 20210624
  Receipt Date: 20210922
  Transmission Date: 20211014
  Serious: Yes (Hospitalization)
  Sender: FDA-Public Use
  Company Number: AT-ROCHE-2690882

PATIENT
  Age: 52 Year
  Sex: Female
  Weight: 89 kg

DRUGS (25)
  1. FORTECORTIN [Concomitant]
     Active Substance: DEXAMETHASONE
     Dates: start: 20201229
  2. CIPROFLOXACIN. [Concomitant]
     Active Substance: CIPROFLOXACIN
     Dates: start: 20210906
  3. PARACODIN [Concomitant]
     Indication: ACUTE RESPIRATORY FAILURE
     Dates: start: 20190426
  4. BETAISODONA [Concomitant]
     Active Substance: POVIDONE-IODINE
     Dates: start: 20200727
  5. HYDAL [Concomitant]
     Active Substance: HYDROMORPHONE HYDROCHLORIDE
     Indication: PROPHYLAXIS
  6. LIXIANA [Concomitant]
     Active Substance: EDOXABAN TOSYLATE
     Dates: start: 20200420
  7. PANTOLOC [Concomitant]
     Active Substance: PANTOPRAZOLE SODIUM
     Indication: PROPHYLAXIS
     Dates: start: 201911
  8. EUTHYROX [Concomitant]
     Active Substance: LEVOTHYROXINE SODIUM
     Indication: AUTOIMMUNE THYROIDITIS
  9. ZOFRAN [Concomitant]
     Active Substance: ONDANSETRON HYDROCHLORIDE
     Indication: PROPHYLAXIS
  10. NOVALGIN (AUSTRIA) [Concomitant]
     Indication: PROPHYLAXIS
     Dates: start: 202002
  11. CIPRALEX [Concomitant]
     Active Substance: ESCITALOPRAM OXALATE
     Indication: PROPHYLAXIS
  12. VENDAL [Concomitant]
     Active Substance: MORPHINE
     Indication: DYSPNOEA
     Dates: start: 202002
  13. FOSTER [Concomitant]
     Active Substance: BECLOMETHASONE\FORMOTEROL
     Dates: start: 202002
  14. ATEZOLIZUMAB. [Suspect]
     Active Substance: ATEZOLIZUMAB
     Indication: NON-SMALL CELL LUNG CANCER
     Dosage: ON 25/MAY/2020, 15/JUN/2020, 06/JUL/2020, 27/JUL/2020, 17/AUG/2020, 07/SEP/2020, 29/DEC/2020 AND 19/
     Route: 042
  15. DRONABINOL. [Concomitant]
     Active Substance: DRONABINOL
     Indication: PROPHYLAXIS
  16. HYDAL RETARD [Concomitant]
     Active Substance: HYDROMORPHONE HYDROCHLORIDE
     Indication: PROPHYLAXIS
  17. XANOR [Concomitant]
     Active Substance: ALPRAZOLAM
     Indication: PROPHYLAXIS
  18. BERODUAL [Concomitant]
     Active Substance: FENOTEROL HYDROBROMIDE\IPRATROPIUM BROMIDE
     Dates: start: 202002
  19. FORTECORTIN [Concomitant]
     Active Substance: DEXAMETHASONE
     Dates: start: 20200525
  20. ANAEROBEX [Concomitant]
     Active Substance: METRONIDAZOLE
     Dates: start: 20210906
  21. XGEVA [Concomitant]
     Active Substance: DENOSUMAB
     Indication: PROPHYLAXIS
     Dates: start: 20200313
  22. ZOLDEM [Concomitant]
     Active Substance: ZOLPIDEM TARTRATE
     Indication: PROPHYLAXIS
  23. CAL D VITA [Concomitant]
     Indication: PROPHYLAXIS
     Dates: start: 20200327
  24. FRAGMIN [Concomitant]
     Active Substance: DALTEPARIN SODIUM
     Dates: start: 20200414, end: 20200419
  25. MYCOSTATIN [Concomitant]
     Active Substance: NYSTATIN
     Indication: ORAL CANDIDIASIS
     Dates: start: 20200706

REACTIONS (7)
  - Tension headache [Unknown]
  - Peripheral embolism [Recovering/Resolving]
  - Diarrhoea [Recovered/Resolved]
  - Clostridium difficile infection [Recovering/Resolving]
  - Weight decreased [Not Recovered/Not Resolved]
  - Colitis [Unknown]
  - Colitis [Recovering/Resolving]

NARRATIVE: CASE EVENT DATE: 20200401
